FAERS Safety Report 6862317-0 (Version None)
Quarter: 2010Q3

REPORT INFORMATION
  Report Type: 
  Country: None (occurrence: None)
  Receive Date: 20100721
  Receipt Date: 20100716
  Transmission Date: 20110219
  Serious: Yes (Hospitalization)
  Sender: FDA-Public Use
  Company Number: GB-NAPPMUNDI-GBR-2010-0006810

PATIENT
  Sex: Male

DRUGS (2)
  1. BUTRANS 5MG TRANSDERMAL PATCH [Suspect]
     Indication: PRODUCT USED FOR UNKNOWN INDICATION
     Dosage: 5 MCG, Q1H
     Route: 062
  2. BUTRANS 5MG TRANSDERMAL PATCH [Suspect]
     Dosage: 10 MCG, Q1H
     Route: 062

REACTIONS (2)
  - FALL [None]
  - MEDICATION ERROR [None]
